FAERS Safety Report 4332816-4 (Version None)
Quarter: 2004Q1

REPORT INFORMATION
  Report Type: 
  Country: None (occurrence: None)
  Receive Date: 20040330
  Receipt Date: 20040316
  Transmission Date: 20041129
  Serious: Yes (Hospitalization)
  Sender: FDA-Public Use
  Company Number: 2004-112998-NL

PATIENT
  Age: 39 Year
  Sex: Female

DRUGS (19)
  1. DANAPAROID SODIUM [Suspect]
     Indication: DISSEMINATED INTRAVASCULAR COAGULATION
     Dosage: 2500 ANTI_XA
     Route: 041
     Dates: start: 20030307, end: 20030326
  2. BETAMETHASONE [Concomitant]
  3. PREDNISOLONE [Concomitant]
  4. ETOPOSIDE [Concomitant]
  5. CYCLOPHOSPHAMIDE [Concomitant]
  6. CEFOZOPRAN HYDROCHLORIDE [Concomitant]
  7. VANCOMYCIN HYDROCHLORIDE [Concomitant]
  8. IMMUNOGLOBULIN HUMAN NORMAL [Concomitant]
  9. PRIMAXIN [Concomitant]
  10. FAZUCROSS [Concomitant]
  11. ARBEXACIN [Concomitant]
  12. MESNA [Concomitant]
  13. FUNGUARD [Concomitant]
  14. METHYLPREDNISOLONE SODIUM SUCCINATE [Concomitant]
  15. CYCLOSPORINE [Concomitant]
  16. FILGRASTIM [Concomitant]
  17. ALBUMIN (HUMAN) [Concomitant]
  18. PLATELETS [Concomitant]
  19. THROMBIN [Concomitant]

REACTIONS (6)
  - BLOOD ALKALINE PHOSPHATASE INCREASED [None]
  - BLOOD FIBRINOGEN INCREASED [None]
  - BONE MARROW TRANSPLANT [None]
  - INJECTION SITE HAEMORRHAGE [None]
  - PROTEIN TOTAL DECREASED [None]
  - WHITE BLOOD CELL COUNT DECREASED [None]
